FAERS Safety Report 21641630 (Version 1)
Quarter: 2022Q4

REPORT INFORMATION
  Report Type: Spontaneous
  Country: FR (occurrence: FR)
  Receive Date: 20221125
  Receipt Date: 20221125
  Transmission Date: 20230112
  Serious: Yes (Life-Threatening, Hospitalization)
  Sender: FDA-Public Use
  Company Number: FR-AFSSAPS-MP20223448

PATIENT
  Age: 12 Week
  Sex: Male

DRUGS (9)
  1. BOSENTAN [Interacting]
     Active Substance: BOSENTAN
     Indication: Pulmonary arterial hypertension
     Dosage: 2 MILLIGRAM/KILOGRAM, ONCE A DAY
     Route: 065
     Dates: start: 20221004, end: 20221013
  2. BOSENTAN [Interacting]
     Active Substance: BOSENTAN
     Dosage: 4 MILLIGRAM/KILOGRAM, ONCE A DAY
     Route: 065
     Dates: start: 20221013, end: 20221019
  3. SILDENAFIL [Interacting]
     Active Substance: SILDENAFIL
     Indication: Pulmonary arterial hypertension
     Dosage: 8 MILLIGRAM/KILOGRAM
     Route: 065
  4. AMLODIPINE BESYLATE [Concomitant]
     Active Substance: AMLODIPINE BESYLATE
     Indication: Pulmonary arterial hypertension
     Dosage: UNK
     Route: 065
  5. CLONIDINE [Concomitant]
     Active Substance: CLONIDINE
     Indication: Pulmonary arterial hypertension
     Dosage: UNK
     Route: 065
  6. ILOPROST [Concomitant]
     Active Substance: ILOPROST
     Indication: Product used for unknown indication
     Dosage: UNK
     Route: 065
  7. Solupred [Concomitant]
     Indication: Product used for unknown indication
     Dosage: UNK
     Route: 065
     Dates: start: 20221005, end: 20221013
  8. URSODIOL [Concomitant]
     Active Substance: URSODIOL
     Indication: Product used for unknown indication
     Dosage: UNK
     Route: 065
  9. ZITHROMAX [Concomitant]
     Active Substance: AZITHROMYCIN DIHYDRATE
     Indication: Product used for unknown indication
     Dosage: UNK
     Route: 065
     Dates: start: 20221005, end: 20221013

REACTIONS (1)
  - Generalised oedema [Recovered/Resolved]

NARRATIVE: CASE EVENT DATE: 20221015
